FAERS Safety Report 25902794 (Version 1)
Quarter: 2025Q4

REPORT INFORMATION
  Report Type: Spontaneous
  Country: US (occurrence: None)
  Receive Date: 20251008
  Receipt Date: 20251008
  Transmission Date: 20260119
  Serious: No
  Sender: FDA-CTU
  Company Number: None

PATIENT
  Sex: Male

DRUGS (2)
  1. TADALAFIL [Suspect]
     Active Substance: TADALAFIL
     Dosage: 10 MG DAILY ORAL
     Route: 048
  2. CIALIS [Suspect]
     Active Substance: TADALAFIL

REACTIONS (2)
  - Extra dose administered [None]
  - Incorrect dose administered [None]
